FAERS Safety Report 18032379 (Version 1)
Quarter: 2020Q3

REPORT INFORMATION
  Report Type: Report from Study
  Country: GB (occurrence: GB)
  Receive Date: 20200716
  Receipt Date: 20200716
  Transmission Date: 20201103
  Serious: Yes (Hospitalization)
  Sender: FDA-Public Use
  Company Number: GB-ELI_LILLY_AND_COMPANY-GB202005004270

PATIENT
  Age: 64 Year
  Sex: Female
  Weight: 62.2 kg

DRUGS (20)
  1. PREGABALIN. [Concomitant]
     Active Substance: PREGABALIN
     Indication: SUPPORTIVE CARE
     Dosage: UNK
     Dates: start: 20150827
  2. LIDOCAINE. [Concomitant]
     Active Substance: LIDOCAINE
     Indication: SUPPORTIVE CARE
     Dosage: 700 MG, UNKNOWN
     Dates: start: 20151105
  3. CO?DYDRAMOL [Concomitant]
     Active Substance: ACETAMINOPHEN\DIHYDROCODEINE
     Indication: SUPPORTIVE CARE
     Dosage: UNK
     Dates: start: 20150802
  4. CETRIZINE [Concomitant]
     Active Substance: CETIRIZINE HYDROCHLORIDE
     Indication: SEASONAL ALLERGY
     Dosage: UNK
     Dates: start: 20170712
  5. DENOSUMAB [Concomitant]
     Active Substance: DENOSUMAB
     Indication: SUPPORTIVE CARE
     Dosage: UNK
     Dates: start: 20150715
  6. DERMOVATE [Concomitant]
     Active Substance: CLOBETASOL
     Indication: PRURITUS
     Dosage: UNK
     Dates: start: 20150826
  7. LACTULOSE. [Concomitant]
     Active Substance: LACTULOSE
     Indication: SUPPORTIVE CARE
     Dosage: 5 ML, UNKNOWN
     Dates: start: 20150919
  8. LOPERAMIDE [Concomitant]
     Active Substance: LOPERAMIDE
     Indication: SUPPORTIVE CARE
     Dosage: UNK
  9. MOMETASONE [Concomitant]
     Active Substance: MOMETASONE
     Indication: SEASONAL ALLERGY
     Dosage: UNK
     Dates: start: 20170712
  10. SENNOSIDE B [Concomitant]
     Active Substance: SENNOSIDE B
     Indication: SUPPORTIVE CARE
     Dosage: UNK
  11. ABEMACICLIB [Suspect]
     Active Substance: ABEMACICLIB
     Indication: BREAST CANCER
     Dosage: 150 MG, BID
     Route: 048
     Dates: start: 20150623, end: 20200505
  12. LETROZOLE. [Suspect]
     Active Substance: LETROZOLE
     Indication: BREAST CANCER
     Dosage: 2.5 MG, DAILY
     Route: 048
     Dates: start: 20150623
  13. COCODAMOL [Concomitant]
     Active Substance: ACETAMINOPHEN\CODEINE PHOSPHATE
     Indication: SUPPORTIVE CARE
     Dosage: UNK
  14. PARACETAMOL [Concomitant]
     Active Substance: ACETAMINOPHEN
     Indication: SUPPORTIVE CARE
     Dosage: UNK
  15. COLPERMIN [Concomitant]
     Active Substance: PEPPERMINT OIL
     Indication: SUPPORTIVE CARE
     Dosage: UNK
     Dates: start: 20151010
  16. MENTHOL. [Concomitant]
     Active Substance: MENTHOL
     Indication: SUPPORTIVE CARE
     Dosage: UNK
     Dates: start: 20151105
  17. BUSCOPAN [Concomitant]
     Active Substance: BUTYLSCOPOLAMINE BROMIDE
     Indication: SUPPORTIVE CARE
     Dosage: 20 MG, UNKNOWN
     Dates: start: 20150919
  18. ORAMORPH SR SUSTAINED RELEASE [Concomitant]
     Active Substance: MORPHINE SULFATE
     Indication: SUPPORTIVE CARE
     Dosage: UNK
     Dates: start: 20151020
  19. BUTRANS [Concomitant]
     Active Substance: BUPRENORPHINE
     Indication: SUPPORTIVE CARE
     Dosage: UNK
     Dates: start: 20151105
  20. MOVICOL [Concomitant]
     Active Substance: POLYETHYLENE GLYCOL 3350\POTASSIUM CHLORIDE\SODIUM BICARBONATE\SODIUM CHLORIDE
     Indication: PROPHYLAXIS
     Dosage: UNK
     Dates: start: 20150928

REACTIONS (3)
  - White blood cell count decreased [Recovered/Resolved]
  - Urinary tract infection [Recovered/Resolved]
  - Sepsis [Recovered/Resolved]

NARRATIVE: CASE EVENT DATE: 20200511
